APPROVED DRUG PRODUCT: ORPHENADRINE CITRATE
Active Ingredient: ORPHENADRINE CITRATE
Strength: 30MG/ML
Dosage Form/Route: INJECTABLE;INJECTION
Application: A040463 | Product #001 | TE Code: AP
Applicant: HIKMA PHARMACEUTICALS USA INC
Approved: Mar 4, 2003 | RLD: No | RS: No | Type: RX